FAERS Safety Report 14985200 (Version 2)
Quarter: 2019Q1

REPORT INFORMATION
  Report Type: Report from Study
  Country: CN (occurrence: CN)
  Receive Date: 20180607
  Receipt Date: 20190202
  Transmission Date: 20190417
  Serious: Yes (Other)
  Sender: FDA-Public Use
  Company Number: PHHY2018CN008895

PATIENT
  Age: 30 Year
  Sex: Male
  Weight: 48.5 kg

DRUGS (32)
  1. GRANULOCYTE STIMULATING FACTORS [Concomitant]
     Active Substance: GRANULOCYTE COLONY-STIMULATING FACTOR NOS
     Dosage: 100 UG, UNK
     Route: 065
     Dates: start: 20180516, end: 20180517
  2. SULFAMETHOXAZOLE [Concomitant]
     Active Substance: SULFAMETHOXAZOLE
     Dosage: 0.48 G, UNK
     Route: 065
     Dates: start: 20180515
  3. MOXIFLOXACIN. [Concomitant]
     Active Substance: MOXIFLOXACIN
     Indication: ANTIBIOTIC PROPHYLAXIS
     Dosage: 400 MG, UNK
     Route: 065
     Dates: start: 20180515
  4. DILTIAZEM. [Concomitant]
     Active Substance: DILTIAZEM
     Indication: PRODUCT USED FOR UNKNOWN INDICATION
     Dosage: 30 MG, UNK
     Route: 065
     Dates: start: 20180426, end: 20180506
  5. CALCITRIOL. [Concomitant]
     Active Substance: CALCITRIOL
     Indication: PRODUCT USED FOR UNKNOWN INDICATION
     Dosage: 0.25 UG, UNK
     Route: 065
     Dates: start: 20180426
  6. METHYLPREDNISOLONE. [Concomitant]
     Active Substance: METHYLPREDNISOLONE
     Indication: HYPERSENSITIVITY
     Dosage: 40 MG, UNK
     Route: 065
     Dates: start: 20180426, end: 20180510
  7. AZITHROMYCIN ANHYDROUS. [Concomitant]
     Active Substance: AZITHROMYCIN ANHYDROUS
     Indication: INFECTION PROPHYLAXIS
     Dosage: 0.50 G, UNK
     Route: 065
     Dates: start: 20180428
  8. FK 506 [Concomitant]
     Active Substance: TACROLIMUS
     Dosage: 3.0 MG, UNK
     Route: 065
     Dates: start: 20180426, end: 20180426
  9. GRANULOCYTE STIMULATING FACTORS [Concomitant]
     Active Substance: GRANULOCYTE COLONY-STIMULATING FACTOR NOS
     Dosage: 100 UG, UNK
     Route: 065
     Dates: start: 20180505, end: 20180505
  10. SODIUM BICARBONATE. [Concomitant]
     Active Substance: SODIUM BICARBONATE
     Indication: PRODUCT USED FOR UNKNOWN INDICATION
     Dosage: 2 G, UNK
     Route: 065
     Dates: start: 20180428
  11. PREDNISONE. [Concomitant]
     Active Substance: PREDNISONE
     Dosage: 5 MG, UNK
     Route: 065
     Dates: start: 20180515
  12. MYFORTIC [Suspect]
     Active Substance: MYCOPHENOLATE SODIUM
     Indication: RENAL TRANSPLANT
     Dosage: 1440 MG, UNK
     Route: 048
     Dates: start: 20170530, end: 20170606
  13. INSULIN [Concomitant]
     Active Substance: INSULIN NOS
     Indication: PROPHYLAXIS
     Dosage: 4 IU, UNK
     Route: 065
     Dates: start: 20180427, end: 20180429
  14. CALCITRIOL. [Concomitant]
     Active Substance: CALCITRIOL
     Dosage: UNK
  15. HUMAN ALBUMIN [Concomitant]
     Active Substance: ALBUMIN HUMAN
     Indication: PRODUCT USED FOR UNKNOWN INDICATION
     Dosage: 20 G, UNK
     Route: 065
     Dates: start: 20180502, end: 20180509
  16. GRANULOCYTE STIMULATING FACTORS [Concomitant]
     Active Substance: GRANULOCYTE COLONY-STIMULATING FACTOR NOS
     Dosage: 150 UG, UNK
     Route: 065
     Dates: start: 20180515
  17. GANCICLOVIR. [Concomitant]
     Active Substance: GANCICLOVIR
     Indication: ANTIVIRAL PROPHYLAXIS
     Dosage: 250 MG, UNK
     Route: 065
     Dates: start: 20180426, end: 20180510
  18. SULFAMETHOXAZOLE [Concomitant]
     Active Substance: SULFAMETHOXAZOLE
     Indication: ANTIFUNGAL PROPHYLAXIS
     Dosage: 0.96 G, UNK
     Route: 065
     Dates: start: 20180428
  19. FK 506 [Concomitant]
     Active Substance: TACROLIMUS
     Indication: IMMUNOSUPPRESSANT DRUG THERAPY
     Dosage: 1.0 MG, UNK
     Route: 065
     Dates: start: 20180416
  20. FK 506 [Concomitant]
     Active Substance: TACROLIMUS
     Dosage: 2.5 MG, UNK
     Route: 065
     Dates: start: 20180427, end: 20180427
  21. FK 506 [Concomitant]
     Active Substance: TACROLIMUS
     Dosage: 2.5 MG, UNK
     Route: 065
     Dates: start: 20180515, end: 20180516
  22. MYFORTIC [Suspect]
     Active Substance: MYCOPHENOLATE SODIUM
     Dosage: 720 MG, UNK
     Route: 048
     Dates: start: 20170606, end: 20180311
  23. MYFORTIC [Suspect]
     Active Substance: MYCOPHENOLATE SODIUM
     Dosage: 540 MG, UNK
     Route: 048
     Dates: end: 20180312
  24. MYFORTIC [Suspect]
     Active Substance: MYCOPHENOLATE SODIUM
     Dosage: 900 MG, UNK
     Route: 048
     Dates: start: 20180312, end: 20180426
  25. HUMAN IMMUNOGLOBULIN [Concomitant]
     Active Substance: HUMAN IMMUNOGLOBULIN G
     Indication: PRODUCT USED FOR UNKNOWN INDICATION
     Dosage: 10 G, UNK
     Route: 065
     Dates: start: 20180428, end: 20180430
  26. HUMAN IMMUNOGLOBULIN [Concomitant]
     Active Substance: HUMAN IMMUNOGLOBULIN G
     Dosage: 10 G, UNK
     Route: 065
     Dates: start: 20180502, end: 20180506
  27. GRANULOCYTE STIMULATING FACTORS [Concomitant]
     Active Substance: GRANULOCYTE COLONY-STIMULATING FACTOR NOS
     Indication: PRODUCT USED FOR UNKNOWN INDICATION
     Dosage: 150 UG, UNK
     Route: 065
     Dates: start: 20180505, end: 20180505
  28. CARBOPLATIN. [Concomitant]
     Active Substance: CARBOPLATIN
     Indication: ANTIFUNGAL PROPHYLAXIS
     Dosage: 50 MG, UNK
     Route: 065
     Dates: start: 20180426, end: 20180510
  29. VORICONAZOLE. [Concomitant]
     Active Substance: VORICONAZOLE
     Indication: ANTIFUNGAL PROPHYLAXIS
     Dosage: 0.20 G, UNK
     Route: 065
     Dates: start: 20180515
  30. TORASEMIDE [Concomitant]
     Active Substance: TORSEMIDE
     Indication: POLYURIA
     Dosage: 20 MG, UNK
     Route: 065
     Dates: start: 20180505, end: 20180509
  31. PREDNISONE. [Concomitant]
     Active Substance: PREDNISONE
     Indication: IMMUNOSUPPRESSANT DRUG THERAPY
     Dosage: 10 MG, UNK
     Route: 065
     Dates: start: 20170614
  32. FK 506 [Concomitant]
     Active Substance: TACROLIMUS
     Dosage: 2 MG, QD
     Route: 065

REACTIONS (12)
  - Pneumonia [Unknown]
  - Pleural effusion [Unknown]
  - Cytomegalovirus test positive [Unknown]
  - Drug level increased [Recovering/Resolving]
  - Oedema peripheral [Unknown]
  - Platelet count decreased [Unknown]
  - Lymphocyte count decreased [Recovering/Resolving]
  - Blood creatinine increased [Unknown]
  - Nasopharyngitis [Unknown]
  - Hepatic cyst [Unknown]
  - Hepatomegaly [Unknown]
  - White blood cell count decreased [Recovering/Resolving]

NARRATIVE: CASE EVENT DATE: 20180501
